FAERS Safety Report 13558522 (Version 1)
Quarter: 2017Q2

REPORT INFORMATION
  Report Type: Spontaneous
  Country: US (occurrence: US)
  Receive Date: 20170518
  Receipt Date: 20170518
  Transmission Date: 20170830
  Serious: No
  Sender: FDA-Public Use
  Company Number: US-ASTRAZENECA-2017SE49903

PATIENT
  Age: 24718 Day
  Sex: Male

DRUGS (2)
  1. ELIGARD [Suspect]
     Active Substance: LEUPROLIDE ACETATE
     Route: 058
     Dates: start: 20170310
  2. BICALUTAMIDE. [Suspect]
     Active Substance: BICALUTAMIDE
     Route: 048

REACTIONS (8)
  - Pain [Unknown]
  - Influenza like illness [Unknown]
  - Adrenal disorder [Unknown]
  - Milk allergy [Unknown]
  - Confusional state [Unknown]
  - Fatigue [Unknown]
  - Dyspepsia [Recovering/Resolving]
  - Asthenia [Unknown]

NARRATIVE: CASE EVENT DATE: 20170310
